FAERS Safety Report 7999288-X (Version None)
Quarter: 2011Q4

REPORT INFORMATION
  Report Type: 
  Country: None (occurrence: None)
  Receive Date: 20111221
  Receipt Date: 20111212
  Transmission Date: 20120403
  Serious: Yes (Hospitalization)
  Sender: FDA-Public Use
  Company Number: PHHO2011CA020777

PATIENT
  Sex: Female
  Weight: 60.9 kg

DRUGS (4)
  1. OMEPRAZOLE [Suspect]
     Dosage: 20 MG, UNK
     Route: 048
     Dates: start: 20111005, end: 20111005
  2. OMEPRAZOLE [Suspect]
     Indication: DRUG LEVEL
     Dosage: 20 MG, UNK
     Route: 048
     Dates: start: 20110921, end: 20110921
  3. OMEPRAZOLE [Suspect]
     Dosage: 20 MG, UNK
     Route: 048
     Dates: start: 20110914, end: 20110914
  4. OMEPRAZOLE [Suspect]
     Dosage: 20 MG, UNK
     Route: 048
     Dates: start: 20110928, end: 20110928

REACTIONS (2)
  - BLOOD POTASSIUM INCREASED [None]
  - ANAEMIA [None]
